FAERS Safety Report 24416411 (Version 1)
Quarter: 2024Q4

REPORT INFORMATION
  Report Type: Spontaneous
  Country: AU (occurrence: AU)
  Receive Date: 20241009
  Receipt Date: 20241009
  Transmission Date: 20250115
  Serious: Yes (Other)
  Sender: BAYER
  Company Number: AU-BAYER-2024A141539

PATIENT
  Age: 42 Year
  Sex: Female

DRUGS (1)
  1. GADOBUTROL [Suspect]
     Active Substance: GADOBUTROL
     Indication: Magnetic resonance imaging heart
     Dosage: 10 ML, ONCE
     Route: 042
     Dates: start: 20241002, end: 20241002

REACTIONS (4)
  - Nausea [None]
  - Cough [None]
  - Throat irritation [None]
  - Emotional distress [None]

NARRATIVE: CASE EVENT DATE: 20241002
